FAERS Safety Report 17372053 (Version 1)
Quarter: 2020Q1

REPORT INFORMATION
  Report Type: Report from Study
  Country: SE (occurrence: SE)
  Receive Date: 20200205
  Receipt Date: 20200205
  Transmission Date: 20200409
  Serious: Yes (Hospitalization)
  Sender: FDA-Public Use
  Company Number: SE-MYLANLABS-2020M1012914

PATIENT
  Age: 55 Year
  Sex: Female
  Weight: 68 kg

DRUGS (2)
  1. ACICLOVIR [Suspect]
     Active Substance: ACYCLOVIR
     Indication: HERPES ZOSTER OTICUS
     Dosage: 15 MILLIGRAM/KILOGRAM, Q8H
     Route: 042
  2. ACICLOVIR [Suspect]
     Active Substance: ACYCLOVIR
     Dosage: REDUCED DOSAGE
     Route: 042

REACTIONS (3)
  - Blood creatinine increased [Recovering/Resolving]
  - Hypotonia [Recovering/Resolving]
  - Anxiety [Recovering/Resolving]
